FAERS Safety Report 6582033-2 (Version None)
Quarter: 2010Q1

REPORT INFORMATION
  Report Type: 
  Country: None (occurrence: None)
  Receive Date: 20100215
  Receipt Date: 20100210
  Transmission Date: 20100710
  Serious: Yes (Death, Other)
  Sender: FDA-Public Use
  Company Number: US-AMGEN-US332036

PATIENT
  Sex: Female

DRUGS (3)
  1. NPLATE [Suspect]
     Indication: IDIOPATHIC THROMBOCYTOPENIC PURPURA
     Route: 065
     Dates: start: 20081106
  2. DEXAMETHASONE [Concomitant]
     Route: 065
  3. REVLIMID [Concomitant]

REACTIONS (3)
  - CHILLS [None]
  - DEATH [None]
  - HYPOAESTHESIA [None]
